FAERS Safety Report 7726617-4 (Version None)
Quarter: 2011Q3

REPORT INFORMATION
  Report Type: 
  Country: None (occurrence: None)
  Receive Date: 20110902
  Receipt Date: 20110822
  Transmission Date: 20111222
  Serious: Yes (Hospitalization)
  Sender: FDA-Public Use
  Company Number: JP-ELI_LILLY_AND_COMPANY-JP201107004767

PATIENT
  Sex: Female
  Weight: 45 kg

DRUGS (6)
  1. MIRTAZAPINE [Concomitant]
     Indication: DEPRESSION
     Dosage: 15 MG, QD
     Route: 048
     Dates: start: 20100707, end: 20110708
  2. MOTILIUM [Concomitant]
     Indication: PROPHYLAXIS
     Dosage: 10 MG, QD
     Route: 048
     Dates: start: 20100707
  3. CYMBALTA [Suspect]
     Dosage: 60 MG, QD
     Route: 048
     Dates: start: 20110621, end: 20110705
  4. CYMBALTA [Suspect]
     Indication: DEPRESSION
     Dosage: 20 MG, QD
     Route: 048
     Dates: start: 20110405, end: 20110523
  5. CYMBALTA [Suspect]
     Dosage: 40 MG, QD
     Route: 048
     Dates: start: 20110524, end: 20110620
  6. KAMISHOUYOUSAN [Concomitant]
     Indication: DEPRESSION
     Dosage: 2.5 G, TID
     Route: 048
     Dates: start: 20100928, end: 20110711

REACTIONS (2)
  - DELUSION [None]
  - HALLUCINATION [None]
